FAERS Safety Report 5508633-6 (Version None)
Quarter: 2007Q4

REPORT INFORMATION
  Report Type: 
  Country: None (occurrence: None)
  Receive Date: 20071107
  Receipt Date: 20071030
  Transmission Date: 20080405
  Serious: Yes (Hospitalization)
  Sender: FDA-Public Use
  Company Number: DE-BAYER-200710784BVD

PATIENT
  Age: 47 Year
  Sex: Male
  Weight: 100 kg

DRUGS (1)
  1. CIPRO [Suspect]
     Indication: DIARRHOEA
     Route: 048
     Dates: start: 20070602, end: 20070603

REACTIONS (15)
  - DYSPHAGIA [None]
  - ERYTHEMA ANNULARE [None]
  - HYPERBILIRUBINAEMIA [None]
  - LIVER DISORDER [None]
  - MONARTHRITIS [None]
  - MUSCLE TIGHTNESS [None]
  - MYALGIA [None]
  - NUCHAL RIGIDITY [None]
  - OEDEMA MUCOSAL [None]
  - OEDEMA PERIPHERAL [None]
  - PANCREATITIS [None]
  - POLYARTHRITIS [None]
  - SPLENOMEGALY [None]
  - SWELLING FACE [None]
  - TRISMUS [None]
